FAERS Safety Report 24034162 (Version 1)
Quarter: 2024Q3

REPORT INFORMATION
  Report Type: Spontaneous
  Country: DE (occurrence: DE)
  Receive Date: 20240701
  Receipt Date: 20240701
  Transmission Date: 20241017
  Serious: Yes (Life-Threatening, Hospitalization, Other)
  Sender: ALKEM
  Company Number: None

PATIENT
  Age: 41 Year
  Sex: Female
  Weight: 72 kg

DRUGS (2)
  1. IBUPROFEN [Suspect]
     Active Substance: IBUPROFEN
     Indication: Spinal disorder
     Dosage: 1800 MILLIGRAM, QD, TABLET
     Route: 048
  2. METAMIZOL [Suspect]
     Active Substance: METAMIZOLE SODIUM
     Indication: Spinal pain
     Dosage: 90 DROP, QD, ORAL DROPS
     Route: 048

REACTIONS (14)
  - Disseminated intravascular coagulation [Unknown]
  - Arterial haemorrhage [Unknown]
  - Organ failure [Unknown]
  - Septic shock [Recovering/Resolving]
  - Parapharyngeal space infection [Recovering/Resolving]
  - Dysphonia [Recovering/Resolving]
  - Disseminated intravascular coagulation [Recovering/Resolving]
  - Epiglottitis [Recovering/Resolving]
  - Pneumonia [Recovering/Resolving]
  - Dysphagia [Recovering/Resolving]
  - Arterial haemorrhage [Recovering/Resolving]
  - Respiratory disorder [Recovering/Resolving]
  - Pyrexia [Recovering/Resolving]
  - Agranulocytosis [Recovered/Resolved]

NARRATIVE: CASE EVENT DATE: 20100415
